FAERS Safety Report 25930465 (Version 1)
Quarter: 2025Q4

REPORT INFORMATION
  Report Type: Spontaneous
  Country: US (occurrence: US)
  Receive Date: 20251016
  Receipt Date: 20251016
  Transmission Date: 20260118
  Serious: No
  Sender: ROCHE
  Company Number: US-ROCHE-10000410867

PATIENT
  Age: 34 Year
  Sex: Female
  Weight: 53.52 kg

DRUGS (2)
  1. XOLAIR [Suspect]
     Active Substance: OMALIZUMAB
     Indication: Chronic spontaneous urticaria
     Route: 058
     Dates: start: 2021
  2. XOLAIR [Suspect]
     Active Substance: OMALIZUMAB
     Indication: Asthma
     Route: 065
     Dates: start: 20251011

REACTIONS (4)
  - Urticaria [Not Recovered/Not Resolved]
  - Asthma [Recovered/Resolved]
  - Arthralgia [Unknown]
  - Lethargy [Unknown]

NARRATIVE: CASE EVENT DATE: 20251012
